FAERS Safety Report 10628116 (Version 2)
Quarter: 2014Q4

REPORT INFORMATION
  Report Type: Spontaneous
  Country: US (occurrence: US)
  Receive Date: 20141205
  Receipt Date: 20141205
  Transmission Date: 20150529
  Serious: No
  Sender: FDA-Public Use
  Company Number: US-BRISTOL-MYERS SQUIBB COMPANY-21075585

PATIENT
  Sex: Male

DRUGS (1)
  1. COUMADIN [Suspect]
     Active Substance: WARFARIN SODIUM
     Dosage: BETWEEN 4MG AND 5MG

REACTIONS (3)
  - Drug dose omission [Unknown]
  - International normalised ratio abnormal [Unknown]
  - Wound haemorrhage [Unknown]
